FAERS Safety Report 24541887 (Version 1)
Quarter: 2024Q4

REPORT INFORMATION
  Report Type: Spontaneous
  Country: UA (occurrence: UA)
  Receive Date: 20241023
  Receipt Date: 20241023
  Transmission Date: 20250115
  Serious: Yes (Death, Other)
  Sender: MERCK
  Company Number: UA-009507513-2410UKR009943

PATIENT
  Age: 50 Year
  Sex: Male

DRUGS (1)
  1. KEYTRUDA [Suspect]
     Active Substance: PEMBROLIZUMAB
     Indication: Non-small cell lung cancer metastatic
     Dosage: UNK
     Dates: start: 2020, end: 2022

REACTIONS (6)
  - Death [Fatal]
  - Adrenal insufficiency [Unknown]
  - Pneumonitis [Unknown]
  - Malignant neoplasm progression [Unknown]
  - Intestinal obstruction [Unknown]
  - Thrombosis [Unknown]

NARRATIVE: CASE EVENT DATE: 20211001
